FAERS Safety Report 24659131 (Version 1)
Quarter: 2024Q4

REPORT INFORMATION
  Report Type: Spontaneous
  Country: BR (occurrence: BR)
  Receive Date: 20241125
  Receipt Date: 20241125
  Transmission Date: 20250115
  Serious: Yes (Other)
  Sender: TAKEDA
  Company Number: BR-TAKEDA-2024TUS117505

PATIENT
  Sex: Female

DRUGS (1)
  1. DEXILANT [Suspect]
     Active Substance: DEXLANSOPRAZOLE
     Indication: Product used for unknown indication
     Dosage: 60 MILLIGRAM, QD

REACTIONS (6)
  - Asphyxia [Unknown]
  - Foreign body in throat [Unknown]
  - Tachycardia [Unknown]
  - Gastritis [Unknown]
  - Dyspepsia [Unknown]
  - Diarrhoea [Unknown]
